FAERS Safety Report 16754045 (Version 2)
Quarter: 2019Q3

REPORT INFORMATION
  Report Type: Spontaneous
  Country: US (occurrence: US)
  Receive Date: 20190829
  Receipt Date: 20190911
  Transmission Date: 20191005
  Serious: Yes (Other)
  Sender: FDA-Public Use
  Company Number: US-PFIZER INC-2019345206

PATIENT
  Age: 29 Year
  Sex: Female
  Weight: 72.57 kg

DRUGS (5)
  1. LYRICA [Suspect]
     Active Substance: PREGABALIN
     Indication: FIBROMYALGIA
     Dosage: 150 MG, 3X/DAY
  2. AMITRIPTYLINE [Concomitant]
     Active Substance: AMITRIPTYLINE
     Dosage: UNK
     Dates: end: 20190806
  3. TOPIRAMATE. [Concomitant]
     Active Substance: TOPIRAMATE
     Indication: MIGRAINE
     Dosage: UNK
  4. LYRICA [Suspect]
     Active Substance: PREGABALIN
     Dosage: UNK, ONE A DAY
     Dates: start: 201907
  5. PANTOPRAZOLE [Concomitant]
     Active Substance: PANTOPRAZOLE
     Dosage: 40 MG, UNK

REACTIONS (12)
  - Withdrawal syndrome [Unknown]
  - Disease recurrence [Unknown]
  - Pain [Unknown]
  - Malaise [Unknown]
  - Autoimmune disorder [Unknown]
  - Product physical issue [Unknown]
  - Intentional product misuse [Unknown]
  - Product dose omission [Unknown]
  - Migraine [Unknown]
  - Vomiting [Unknown]
  - Vertigo [Unknown]
  - Insomnia [Unknown]

NARRATIVE: CASE EVENT DATE: 2019
